FAERS Safety Report 5431445-9 (Version None)
Quarter: 2007Q3

REPORT INFORMATION
  Report Type: 
  Country: None (occurrence: None)
  Receive Date: 20070830
  Receipt Date: 20070717
  Transmission Date: 20080115
  Serious: Yes (Hospitalization, Disabling, Other)
  Sender: FDA-Public Use
  Company Number: A0658253A

PATIENT
  Age: 18 Year
  Sex: Female
  Weight: 54.5 kg

DRUGS (6)
  1. WELLBUTRIN XL [Suspect]
     Indication: DEPRESSION
     Dosage: 3TAB PER DAY
     Dates: start: 20070415, end: 20070618
  2. PROZAC [Suspect]
     Dosage: 40MG UNKNOWN
     Route: 048
  3. 6MP [Concomitant]
  4. FOLIC ACID [Concomitant]
  5. ASACOL [Concomitant]
  6. BACTRIM [Concomitant]

REACTIONS (4)
  - CONVULSION [None]
  - DRUG INTERACTION [None]
  - ELECTROENCEPHALOGRAM ABNORMAL [None]
  - POSTICTAL STATE [None]
